FAERS Safety Report 4599710-5 (Version None)
Quarter: 2005Q1

REPORT INFORMATION
  Report Type: 
  Country: None (occurrence: None)
  Receive Date: 20050307
  Receipt Date: 20050221
  Transmission Date: 20050727
  Serious: Yes (Hospitalization, Other)
  Sender: FDA-Public Use
  Company Number: US-JNJFOC-20050205304

PATIENT
  Age: 36 Year
  Sex: Male

DRUGS (4)
  1. DITROPAN XL [Suspect]
     Indication: BLADDER CANCER
     Route: 049
  2. PERCOCET [Concomitant]
  3. PERCOCET [Concomitant]
  4. DEMEROL [Concomitant]

REACTIONS (14)
  - ALANINE AMINOTRANSFERASE INCREASED [None]
  - ASPARTATE AMINOTRANSFERASE INCREASED [None]
  - ATRIAL FIBRILLATION [None]
  - BLADDER PAIN [None]
  - BLADDER SPASM [None]
  - BLOOD ALKALINE PHOSPHATASE INCREASED [None]
  - DIARRHOEA [None]
  - GASTROINTESTINAL MOTILITY DISORDER [None]
  - INTENTIONAL MISUSE [None]
  - NAUSEA [None]
  - PYREXIA [None]
  - TACHYCARDIA [None]
  - THERAPEUTIC AGENT TOXICITY [None]
  - VOMITING [None]
